FAERS Safety Report 6469728-6 (Version None)
Quarter: 2009Q4

REPORT INFORMATION
  Report Type: 
  Country: None (occurrence: None)
  Receive Date: 20091130
  Receipt Date: 20091110
  Transmission Date: 20100525
  Serious: Yes (Hospitalization)
  Sender: FDA-Public Use
  Company Number: JP-001095

PATIENT
  Age: 30 Year
  Sex: Female

DRUGS (2)
  1. MENOTROPINS [Suspect]
     Indication: ARTIFICIAL INSEMINATION BY PARTNER
  2. HCG (HCG) [Suspect]

REACTIONS (7)
  - ABDOMINAL PAIN LOWER [None]
  - BLIGHTED OVUM [None]
  - ECTOPIC PREGNANCY [None]
  - GENITAL HAEMORRHAGE [None]
  - PELVIC ADHESIONS [None]
  - PERITONEAL HAEMORRHAGE [None]
  - SURGICAL PROCEDURE REPEATED [None]
